FAERS Safety Report 9734908 (Version 3)
Quarter: 2014Q1

REPORT INFORMATION
  Report Type: Spontaneous
  Country: US (occurrence: US)
  Receive Date: 20131206
  Receipt Date: 20140219
  Transmission Date: 20141002
  Serious: No
  Sender: FDA-Public Use
  Company Number: US-PFIZER INC-2013345293

PATIENT
  Age: 50 Year
  Sex: Male
  Weight: 72.56 kg

DRUGS (3)
  1. ALAVERT D-12 HOUR ALLERGY + SINUS [Suspect]
     Indication: LACRIMATION INCREASED
     Dosage: 5 MG/120 MG,  TWO TIMES DAILY
     Route: 048
     Dates: start: 201311, end: 20131201
  2. ALAVERT D-12 HOUR ALLERGY + SINUS [Suspect]
     Indication: NASAL DECONGESTION THERAPY
  3. ACETAMINOPHEN [Concomitant]
     Indication: ANALGESIC THERAPY
     Dosage: UNK

REACTIONS (1)
  - Drug effect incomplete [Unknown]
